FAERS Safety Report 14142708 (Version 1)
Quarter: 2017Q4

REPORT INFORMATION
  Report Type: Spontaneous
  Country: US (occurrence: US)
  Receive Date: 20171030
  Receipt Date: 20171030
  Transmission Date: 20180321
  Serious: No
  Sender: FDA-Public Use
  Company Number: US-MIST-TIR-2017-0607

PATIENT
  Age: 60 Year
  Sex: Female
  Weight: 56.75 kg

DRUGS (9)
  1. TIROSINT [Suspect]
     Active Substance: LEVOTHYROXINE SODIUM
     Indication: THYROIDECTOMY
     Dosage: ONE 75MCG CAPSULE DAILY ON WEEKDAYS AND ONE 88MCG CAPSULE DAILY ON WEEKENDS
     Route: 048
     Dates: start: 201703, end: 201705
  2. TIROSINT [Suspect]
     Active Substance: LEVOTHYROXINE SODIUM
     Dosage: ONE 100MCG CAPSULE DAILY
     Route: 048
     Dates: start: 201705
  3. PRAVASTATIN. [Concomitant]
     Active Substance: PRAVASTATIN
     Indication: PRODUCT USED FOR UNKNOWN INDICATION
  4. PROVIGIL [Concomitant]
     Active Substance: MODAFINIL
     Indication: PRODUCT USED FOR UNKNOWN INDICATION
  5. BIOTIN [Concomitant]
     Active Substance: BIOTIN
     Indication: PRODUCT USED FOR UNKNOWN INDICATION
  6. VITAMIN D [Concomitant]
     Active Substance: CHOLECALCIFEROL
     Indication: PRODUCT USED FOR UNKNOWN INDICATION
  7. TIROSINT [Suspect]
     Active Substance: LEVOTHYROXINE SODIUM
     Indication: THYROIDECTOMY
     Dosage: ONE 75MCG CAPSULE DAILY
     Route: 048
     Dates: start: 201703, end: 2017
  8. TIROSINT [Suspect]
     Active Substance: LEVOTHYROXINE SODIUM
     Dosage: ONE 75MCG CAPSULE DAILY ON WEEKDAYS AND ONE 88MCG CAPSULE DAILY ON WEEKENDS
     Route: 048
     Dates: start: 201703, end: 201705
  9. FUROSEMIDE. [Concomitant]
     Active Substance: FUROSEMIDE
     Indication: PRODUCT USED FOR UNKNOWN INDICATION

REACTIONS (5)
  - Peripheral swelling [Not Recovered/Not Resolved]
  - Abdominal distension [Not Recovered/Not Resolved]
  - Abdominal pain [Not Recovered/Not Resolved]
  - Weight increased [Not Recovered/Not Resolved]
  - Constipation [Not Recovered/Not Resolved]

NARRATIVE: CASE EVENT DATE: 201703
